FAERS Safety Report 4288619-2 (Version None)
Quarter: 2004Q1

REPORT INFORMATION
  Report Type: 
  Country: None (occurrence: None)
  Receive Date: 20040209
  Receipt Date: 20040127
  Transmission Date: 20041129
  Serious: Yes (Other)
  Sender: FDA-Public Use
  Company Number: GB-GLAXOSMITHKLINE-B0321174A

PATIENT
  Age: 23 Year
  Sex: Female

DRUGS (3)
  1. TOPOTECAN [Suspect]
     Indication: OVARIAN CANCER
     Dosage: 1.25MGM2 SEE DOSAGE TEXT
     Route: 042
  2. PACLITAXEL [Suspect]
     Indication: OVARIAN CANCER
     Dosage: 175MGM2 SEE DOSAGE TEXT
     Route: 042
  3. CARBOPLATIN [Suspect]
     Indication: OVARIAN CANCER
     Dosage: 6240MG CUMULATIVE DOSE
     Route: 042

REACTIONS (2)
  - FEMALE GENITAL TRACT FISTULA [None]
  - INTESTINAL FISTULA [None]
